FAERS Safety Report 7954356-3 (Version None)
Quarter: 2011Q4

REPORT INFORMATION
  Report Type: 
  Country: None (occurrence: None)
  Receive Date: 20111202
  Receipt Date: 20111122
  Transmission Date: 20120403
  Serious: Yes (Hospitalization)
  Sender: FDA-Public Use
  Company Number: CA-JNJFOC-20111110908

PATIENT
  Sex: Female
  Weight: 57.7 kg

DRUGS (6)
  1. REMICADE [Suspect]
     Indication: CROHN'S DISEASE
     Dates: start: 20100511
  2. TYLENOL ES [Concomitant]
  3. CODEINE [Concomitant]
  4. SYNTHROID [Concomitant]
  5. SODIUM CHLORIDE [Concomitant]
  6. ESCITALOPRAM [Concomitant]

REACTIONS (1)
  - ILEOSTOMY CLOSURE [None]
